FAERS Safety Report 9200239 (Version 1)
Quarter: 2013Q1

REPORT INFORMATION
  Report Type: Spontaneous
  Country: SE (occurrence: HU)
  Receive Date: 20130329
  Receipt Date: 20130329
  Transmission Date: 20140127
  Serious: Yes (Hospitalization)
  Sender: FDA-Public Use
  Company Number: SE-ABBOTT-13P-150-1068051-00

PATIENT
  Age: 28 None
  Sex: Female

DRUGS (3)
  1. HUMIRA [Suspect]
     Indication: CROHN^S DISEASE
     Route: 058
     Dates: start: 201202, end: 201208
  2. HUMIRA [Suspect]
     Dosage: INDUCTION DOSE UPON REINITIATION OF HUMIRA
     Dates: start: 20130117, end: 20130129
  3. HUMIRA [Suspect]
     Dates: start: 20130216

REACTIONS (11)
  - Brain stem stroke [Recovering/Resolving]
  - Body temperature decreased [Recovered/Resolved]
  - Pupils unequal [Unknown]
  - Pyrexia [Recovered/Resolved]
  - Inflammatory marker increased [Recovered/Resolved]
  - Gastrointestinal haemorrhage [Recovering/Resolving]
  - Hemiparesis [Not Recovered/Not Resolved]
  - Coordination abnormal [Not Recovered/Not Resolved]
  - Balance disorder [Not Recovered/Not Resolved]
  - Fine motor delay [Not Recovered/Not Resolved]
  - Fatigue [Not Recovered/Not Resolved]
